FAERS Safety Report 4550976-7 (Version None)
Quarter: 2004Q4

REPORT INFORMATION
  Report Type: 
  Country: None (occurrence: None)
  Receive Date: 20041217
  Receipt Date: 20040823
  Transmission Date: 20050328
  Serious: No
  Sender: FDA-Public Use
  Company Number: 2004-BP-07151BP

PATIENT
  Age: 59 Year
  Sex: Male

DRUGS (17)
  1. SPIRIVA [Suspect]
     Indication: CHRONIC OBSTRUCTIVE AIRWAYS DISEASE
     Dosage: 18 MCG (18 MCG) IH
     Route: 055
     Dates: start: 20040819
  2. PROZAC [Concomitant]
  3. PLAVIX [Concomitant]
  4. TEMAZEPAM [Concomitant]
  5. AMITRIPTYLINE (AMITRIPTYLINE) [Concomitant]
  6. CALCIUM (CALCIUM) [Concomitant]
  7. OMEPRAZOLE [Concomitant]
  8. DARVOCET [Concomitant]
  9. HYOCYAMINE SULFATE [Concomitant]
  10. NORVASC [Concomitant]
  11. ADVAIR (SERETIDE MITE) [Concomitant]
  12. ACETYLSALICYLIC ACID SRT [Concomitant]
  13. FLEXERIL [Concomitant]
  14. FLONASE [Concomitant]
  15. ZELNORM [Concomitant]
  16. VIOXX [Concomitant]
  17. VALSARTAN (VALSARTAN) [Concomitant]

REACTIONS (2)
  - GINGIVAL PAIN [None]
  - MYALGIA [None]
